FAERS Safety Report 9493486 (Version 3)
Quarter: 2013Q3

REPORT INFORMATION
  Report Type: Spontaneous
  Country: CA (occurrence: CA)
  Receive Date: 20130902
  Receipt Date: 20130923
  Transmission Date: 20140515
  Serious: Yes (Other)
  Sender: FDA-Public Use
  Company Number: CA-PFIZER INC-2013160542

PATIENT
  Age: 76 Year
  Sex: Female
  Weight: 62.13 kg

DRUGS (2)
  1. ADVIL EXTRA STRENGTH LIQUI-GELS [Suspect]
     Indication: HEADACHE
     Dosage: 400 MG, AS NEEDED
     Route: 048
     Dates: start: 20130524, end: 20130524
  2. ADVIL EXTRA STRENGTH LIQUI-GELS [Suspect]
     Dosage: UNK
     Dates: start: 201305

REACTIONS (30)
  - Foreign body [Recovered/Resolved]
  - Choking sensation [Recovered/Resolved]
  - Sensation of foreign body [Recovered/Resolved]
  - Dyspepsia [Recovered/Resolved with Sequelae]
  - Headache [Recovered/Resolved]
  - Malaise [Recovered/Resolved]
  - Fear [Recovered/Resolved]
  - Hypersensitivity [Recovered/Resolved]
  - Discomfort [Recovered/Resolved]
  - Depressed mood [Recovered/Resolved]
  - Dysphagia [Recovered/Resolved]
  - Hyperchlorhydria [Not Recovered/Not Resolved]
  - General physical health deterioration [Recovered/Resolved]
  - Food intolerance [Not Recovered/Not Resolved]
  - Abdominal discomfort [Recovered/Resolved]
  - Gastric disorder [Recovered/Resolved]
  - Dyspnoea [Recovered/Resolved]
  - Ulcer [Recovered/Resolved]
  - Sleep disorder [Recovered/Resolved]
  - Throat irritation [Recovered/Resolved]
  - Frustration [Recovered/Resolved]
  - Panic attack [Recovered/Resolved]
  - Anxiety [Recovered/Resolved]
  - Chest discomfort [Recovered/Resolved]
  - Abdominal pain upper [Recovered/Resolved]
  - Stress [Recovered/Resolved]
  - Inflammation [Recovered/Resolved]
  - Product size issue [Unknown]
  - Product physical issue [Unknown]
  - Oesophageal pain [Recovered/Resolved]
